FAERS Safety Report 5105756-0 (Version None)
Quarter: 2006Q3

REPORT INFORMATION
  Report Type: 
  Country: None (occurrence: None)
  Receive Date: 20060915
  Receipt Date: 20060904
  Transmission Date: 20061208
  Serious: Yes (Death)
  Sender: FDA-Public Use
  Company Number: BE-BRISTOL-MYERS SQUIBB COMPANY-13499603

PATIENT
  Age: 21 Year
  Sex: Female
  Weight: 60 kg

DRUGS (9)
  1. DASATINIB [Suspect]
     Indication: ACUTE MYELOID LEUKAEMIA
     Route: 048
     Dates: start: 20060621, end: 20060709
  2. CASPOFUNGIN ACETATE [Concomitant]
     Route: 042
     Dates: start: 20060701, end: 20060720
  3. CEFEPIME [Concomitant]
     Route: 042
     Dates: start: 20060701, end: 20060720
  4. VANCOMYCIN [Concomitant]
     Route: 042
     Dates: start: 20060703, end: 20060720
  5. AMIKACIN [Concomitant]
     Dates: start: 20060701, end: 20060720
  6. AMPHOTERICIN B [Concomitant]
     Route: 042
     Dates: start: 20060706, end: 20060720
  7. VORICONAZOLE [Concomitant]
     Route: 048
     Dates: start: 20060701, end: 20060720
  8. RANITIDINE [Concomitant]
     Route: 042
     Dates: start: 20060701, end: 20060720
  9. ACYCLOVIR [Concomitant]
     Route: 042
     Dates: start: 20060701, end: 20060720

REACTIONS (6)
  - ACUTE RESPIRATORY DISTRESS SYNDROME [None]
  - BRONCHOPULMONARY ASPERGILLOSIS [None]
  - CARDIAC FAILURE [None]
  - ENDOCARDITIS [None]
  - MALIGNANT NEOPLASM PROGRESSION [None]
  - MYOCARDIAL INFARCTION [None]
